FAERS Safety Report 8759750 (Version 1)
Quarter: 2012Q4

REPORT INFORMATION
  Report Type: 
  Country: CN (occurrence: CN)
  Receive Date: 20120829
  Receipt Date: 20120829
  Transmission Date: 20130627
  Serious: Yes (Other)
  Sender: FDA-Public Use
  Company Number: CN-ROCHE-1103479

PATIENT
  Sex: Female
  Weight: 3.6 kg

DRUGS (6)
  1. ROCEPHIN [Suspect]
     Indication: PNEUMONIA
     Route: 041
     Dates: start: 20110606, end: 20110618
  2. ROCEPHIN [Suspect]
     Indication: SEPSIS
  3. ROCEPHIN [Suspect]
     Indication: CENTRAL NERVOUS SYSTEM INFECTION
  4. PIPERACILLIN SODIUM/SULBACTAM SODIUM [Concomitant]
     Indication: PNEUMONIA
     Route: 041
     Dates: start: 20110606, end: 20110616
  5. PIPERACILLIN SODIUM/SULBACTAM SODIUM [Concomitant]
     Indication: SEPSIS
  6. PIPERACILLIN SODIUM/SULBACTAM SODIUM [Concomitant]
     Indication: CENTRAL NERVOUS SYSTEM INFECTION

REACTIONS (1)
  - Total bile acids increased [Recovering/Resolving]
